FAERS Safety Report 6865093-0 (Version None)
Quarter: 2010Q3

REPORT INFORMATION
  Report Type: 
  Country: None (occurrence: None)
  Receive Date: 20100721
  Receipt Date: 20080410
  Transmission Date: 20110219
  Serious: No
  Sender: FDA-Public Use
  Company Number: US-PFIZER INC-2008033213

PATIENT
  Age: 52 Year
  Sex: Female
  Weight: 74.5 kg

DRUGS (6)
  1. CHANTIX [Suspect]
  2. WELLBUTRIN XL [Concomitant]
  3. AMITRIPTYLINE HYDROCHLORIDE [Concomitant]
  4. SIMVASTATIN [Concomitant]
  5. AMBIEN [Concomitant]
  6. DRUG, UNSPECIFIED [Concomitant]

REACTIONS (6)
  - AGGRESSION [None]
  - ANGER [None]
  - CRYING [None]
  - HOSTILITY [None]
  - IRRITABILITY [None]
  - MOOD ALTERED [None]
